FAERS Safety Report 6283802-9 (Version None)
Quarter: 2009Q3

REPORT INFORMATION
  Report Type: 
  Country: None (occurrence: None)
  Receive Date: 20090724
  Receipt Date: 20090714
  Transmission Date: 20100115
  Serious: Yes (Other)
  Sender: FDA-Public Use
  Company Number: US-PFIZER INC-2009222931

PATIENT
  Sex: Female
  Weight: 87.982 kg

DRUGS (2)
  1. CHANTIX [Suspect]
     Indication: SMOKING CESSATION THERAPY
     Dates: start: 20090301, end: 20090501
  2. GLUCOSAMINE [Concomitant]
     Indication: ARTHROPATHY
     Dosage: 500 MG, UNK

REACTIONS (12)
  - ANGER [None]
  - ANXIETY [None]
  - ASTHENIA [None]
  - DISSOCIATION [None]
  - DISTURBANCE IN ATTENTION [None]
  - HOMICIDAL IDEATION [None]
  - IRRITABILITY [None]
  - NERVOUSNESS [None]
  - PARANOIA [None]
  - SOMNOLENCE [None]
  - SUICIDAL IDEATION [None]
  - TEARFULNESS [None]
